FAERS Safety Report 17725629 (Version 2)
Quarter: 2020Q2

REPORT INFORMATION
  Report Type: Spontaneous
  Country: US (occurrence: US)
  Receive Date: 20200429
  Receipt Date: 20200504
  Transmission Date: 20200714
  Serious: Yes (Hospitalization, Other)
  Sender: FDA-Public Use
  Company Number: US-PFIZER INC-2020169174

PATIENT
  Age: 67 Year

DRUGS (2)
  1. ELIQUIS [Suspect]
     Active Substance: APIXABAN
     Indication: THROMBOSIS
     Dosage: UNK
  2. PREMARIN [Suspect]
     Active Substance: ESTROGENS, CONJUGATED
     Dosage: UNK

REACTIONS (8)
  - Arterial thrombosis [Unknown]
  - Oral pain [Unknown]
  - Alopecia [Unknown]
  - Trichorrhexis [Unknown]
  - Swollen tongue [Unknown]
  - Pneumonia [Unknown]
  - Dry mouth [Unknown]
  - Neoplasm malignant [Unknown]
